FAERS Safety Report 7316202-0 (Version None)
Quarter: 2011Q1

REPORT INFORMATION
  Report Type: 
  Country: None (occurrence: None)
  Receive Date: 20110225
  Receipt Date: 20110218
  Transmission Date: 20110831
  Serious: Yes (Hospitalization, Other)
  Sender: FDA-Public Use
  Company Number: US-B.I. PHARMACEUTICALS,INC./RIDGEFIELD-2011-BP-04987BP

PATIENT
  Age: 78 Year
  Sex: Male

DRUGS (11)
  1. SPIRIVA [Suspect]
     Indication: CHRONIC OBSTRUCTIVE PULMONARY DISEASE
     Dosage: 18 MCG
     Route: 055
  2. LISINOPRIL [Concomitant]
     Dosage: 20 MG
  3. MULTIPLE OTC VITAMINS AND MINERALS [Concomitant]
  4. FLUTICASONE PROPIONATE [Concomitant]
     Indication: EMPHYSEMA
  5. FORADIL [Concomitant]
     Dosage: 24 MCG
  6. CLARITIN [Concomitant]
     Indication: HYPERSENSITIVITY
     Dosage: 10 MG
  7. SIMVASTATIN [Concomitant]
     Dosage: 20 MG
  8. PRADAXA [Concomitant]
     Indication: ATRIAL FIBRILLATION
     Dosage: 150 MG
     Route: 048
     Dates: start: 20110101
  9. OMEPRAZOLE [Concomitant]
  10. MULTAQ [Concomitant]
     Dosage: 800 MG
  11. METOPROLOL SUCCINATE [Concomitant]
     Dosage: 150 MG

REACTIONS (4)
  - CARDIAC PACEMAKER INSERTION [None]
  - DYSPNOEA [None]
  - CARDIAC ANEURYSM REPAIR [None]
  - LARYNGEAL CANCER [None]
